FAERS Safety Report 14874031 (Version 1)
Quarter: 2018Q2

REPORT INFORMATION
  Report Type: Other
  Country: IT (occurrence: IT)
  Receive Date: 20180510
  Receipt Date: 20180510
  Transmission Date: 20180711
  Serious: Yes (Other)
  Sender: FDA-Public Use
  Company Number: IT-APOTEX-2018AP013015

PATIENT
  Age: 65 Year
  Sex: Female

DRUGS (4)
  1. PAROXETINE. [Suspect]
     Active Substance: PAROXETINE
     Dosage: UNK
     Route: 048
  2. DOXAZOSIN [Suspect]
     Active Substance: DOXAZOSIN\DOXAZOSIN MESYLATE
     Indication: PRODUCT USED FOR UNKNOWN INDICATION
     Dosage: UNK
     Route: 048
  3. TRIAZOLAM. [Suspect]
     Active Substance: TRIAZOLAM
     Indication: PRODUCT USED FOR UNKNOWN INDICATION
     Dosage: UNK
     Route: 048
  4. LEVOTHYROXINE SODIUM. [Suspect]
     Active Substance: LEVOTHYROXINE SODIUM
     Indication: PRODUCT USED FOR UNKNOWN INDICATION
     Dosage: 10 MG, QD
     Route: 048

REACTIONS (6)
  - Dizziness [Recovering/Resolving]
  - Malaise [Recovering/Resolving]
  - Agitation [Recovering/Resolving]
  - Vertigo [Recovering/Resolving]
  - Blood pressure increased [Recovering/Resolving]
  - Restlessness [Recovering/Resolving]

NARRATIVE: CASE EVENT DATE: 20180218
